FAERS Safety Report 8321011-X (Version None)
Quarter: 2012Q2

REPORT INFORMATION
  Report Type: 
  Country: None (occurrence: None)
  Receive Date: 20120430
  Receipt Date: 20120425
  Transmission Date: 20120825
  Serious: Yes (Other)
  Sender: FDA-Public Use
  Company Number: PHHY2012DE031474

PATIENT
  Sex: Female

DRUGS (4)
  1. CLOPIDOGREL [Concomitant]
     Indication: CORONARY ARTERY DISEASE
     Dosage: 75 MG/DAY
     Dates: start: 20080101
  2. ACETYLSALICYLIC ACID SRT [Concomitant]
     Indication: CORONARY ARTERY DISEASE
     Dosage: 100 MG/DAY
     Route: 048
     Dates: start: 20080101
  3. ENALAPRIL MALEATE [Concomitant]
     Indication: HYPERTENSION
     Dosage: 5 MG/DAY
     Dates: start: 20080101
  4. FLUVASTATIN SODIUM [Suspect]
     Indication: HYPERCHOLESTEROLAEMIA
     Dosage: 80 MG, QD
     Route: 048
     Dates: start: 20000718, end: 20080101

REACTIONS (5)
  - BLOOD TRIGLYCERIDES [None]
  - BLOOD PRESSURE INCREASED [None]
  - ANGINA PECTORIS [None]
  - DYSPNOEA [None]
  - BLOOD CHOLESTEROL INCREASED [None]
